FAERS Safety Report 12157896 (Version 1)
Quarter: 2016Q1

REPORT INFORMATION
  Report Type: Spontaneous
  Country: US (occurrence: US)
  Receive Date: 20160308
  Receipt Date: 20160308
  Transmission Date: 20160526
  Serious: No
  Sender: FDA-Public Use
  Company Number: US-JNJFOC-20150116153

PATIENT
  Age: 59 Year
  Sex: Female

DRUGS (11)
  1. VITAMIN E [Concomitant]
     Active Substance: .ALPHA.-TOCOPHEROL
  2. N ACETYLCYSTEIN [Concomitant]
     Active Substance: ACETYLCYSTEINE
  3. ZINC CHLORIDE [Concomitant]
     Active Substance: ZINC CHLORIDE
  4. B VITAMIN COMPLEX [Concomitant]
  5. ARMOUR THYROID [Concomitant]
     Active Substance: THYROID, PORCINE
  6. IMBRUVICA [Suspect]
     Active Substance: IBRUTINIB
     Indication: LYMPHOMA
     Route: 048
     Dates: start: 20141230
  7. MULTIVITAMINS [Concomitant]
     Active Substance: VITAMINS
  8. ESTRADIOL. [Concomitant]
     Active Substance: ESTRADIOL
  9. ALLOPURINOL. [Concomitant]
     Active Substance: ALLOPURINOL
  10. VITAMIN D [Concomitant]
     Active Substance: CHOLECALCIFEROL
  11. PROGESTERONE. [Concomitant]
     Active Substance: PROGESTERONE

REACTIONS (8)
  - Oedema peripheral [Not Recovered/Not Resolved]
  - Dry skin [Not Recovered/Not Resolved]
  - Blood calcium decreased [Not Recovered/Not Resolved]
  - Fatigue [Not Recovered/Not Resolved]
  - Abdominal pain [Not Recovered/Not Resolved]
  - Blood albumin decreased [Not Recovered/Not Resolved]
  - Mouth ulceration [Not Recovered/Not Resolved]
  - Muscle spasms [Not Recovered/Not Resolved]

NARRATIVE: CASE EVENT DATE: 20141231
